FAERS Safety Report 20908609 (Version 4)
Quarter: 2022Q4

REPORT INFORMATION
  Report Type: Spontaneous
  Country: US (occurrence: US)
  Receive Date: 20220603
  Receipt Date: 20221022
  Transmission Date: 20230113
  Serious: Yes (Hospitalization, Other)
  Sender: FDA-Public Use
  Company Number: US-NOVARTISPH-NVSC2022US123140

PATIENT
  Age: 37 Year
  Sex: Male

DRUGS (1)
  1. KESIMPTA [Suspect]
     Active Substance: OFATUMUMAB
     Indication: Multiple sclerosis
     Dosage: 1 DOSAGE FORM, QMO
     Route: 065
     Dates: start: 202108

REACTIONS (8)
  - Bursitis infective [Unknown]
  - Cellulitis [Unknown]
  - Swelling [Unknown]
  - Pain [Unknown]
  - Erythema [Unknown]
  - Furuncle [Recovered/Resolved]
  - Skin swelling [Unknown]
  - Scar [Unknown]

NARRATIVE: CASE EVENT DATE: 20211201
